FAERS Safety Report 18332931 (Version 1)
Quarter: 2020Q4

REPORT INFORMATION
  Report Type: Report from Study
  Country: US (occurrence: US)
  Receive Date: 20201001
  Receipt Date: 20201001
  Transmission Date: 20210113
  Serious: Yes (Other)
  Sender: FDA-Public Use
  Company Number: NVSC2020US262722

PATIENT
  Sex: Female

DRUGS (2)
  1. ZORTRESS [Suspect]
     Active Substance: EVEROLIMUS
     Indication: RENAL TRANSPLANT
     Dosage: 2.5 MG, BID
     Route: 048
     Dates: start: 2016
  2. ZORTRESS [Suspect]
     Active Substance: EVEROLIMUS
     Dosage: 5 MG, BID
     Route: 048
     Dates: start: 202006, end: 20200912

REACTIONS (2)
  - Proteinuria [Unknown]
  - Oedema peripheral [Recovering/Resolving]
